FAERS Safety Report 6483246-0 (Version None)
Quarter: 2009Q4

REPORT INFORMATION
  Report Type: 
  Country: None (occurrence: None)
  Receive Date: 20091208
  Receipt Date: 20091208
  Transmission Date: 20100525
  Serious: No
  Sender: FDA-Public Use
  Company Number: None

PATIENT
  Age: 54 Year
  Sex: Female
  Weight: 78.0187 kg

DRUGS (1)
  1. TRAMADOL HCL [Suspect]
     Dosage: 50 MG 2 TABLETS QID PO
     Route: 048
     Dates: start: 20091001, end: 20091207

REACTIONS (11)
  - DEPRESSION [None]
  - DRUG DEPENDENCE [None]
  - DRUG EFFECT DECREASED [None]
  - FATIGUE [None]
  - MALAISE [None]
  - NAUSEA [None]
  - PRODUCT ODOUR ABNORMAL [None]
  - PRODUCT SUBSTITUTION ISSUE [None]
  - PRODUCT TASTE ABNORMAL [None]
  - RESTLESS LEGS SYNDROME [None]
  - WITHDRAWAL SYNDROME [None]
